FAERS Safety Report 25083397 (Version 1)
Quarter: 2025Q1

REPORT INFORMATION
  Report Type: Spontaneous
  Country: US (occurrence: None)
  Receive Date: 20250314
  Receipt Date: 20250314
  Transmission Date: 20250408
  Serious: Yes (Hospitalization, Other)
  Sender: FDA-CTU
  Company Number: None

PATIENT
  Age: 0 Year
  Sex: Female
  Weight: 1.16 kg

DRUGS (5)
  1. ARIPIPRAZOLE [Suspect]
     Active Substance: ARIPIPRAZOLE
     Indication: Cyclothymic disorder
     Dates: start: 20220104, end: 20220111
  2. AMPHETAMINE [Suspect]
     Active Substance: AMPHETAMINE
     Dates: start: 20220104
  3. METHYLPHENIDATE [Suspect]
     Active Substance: METHYLPHENIDATE
     Dates: start: 20220125
  4. ESCITALOPRAM [Suspect]
     Active Substance: ESCITALOPRAM OXALATE
     Dates: start: 20220104
  5. VITAMINS [Suspect]
     Active Substance: VITAMINS
     Dates: start: 20220125, end: 20220208

REACTIONS (9)
  - Caesarean section [None]
  - Neonatal respiratory distress syndrome [None]
  - Maternal drugs affecting foetus [None]
  - Premature baby [None]
  - Pyelocaliectasis [None]
  - Haemangioma [None]
  - Plagiocephaly [None]
  - Torticollis [None]
  - Kidney malformation [None]

NARRATIVE: CASE EVENT DATE: 20220712
